FAERS Safety Report 15375767 (Version 1)
Quarter: 2018Q3

REPORT INFORMATION
  Report Type: Spontaneous
  Country: CA (occurrence: CA)
  Receive Date: 20180912
  Receipt Date: 20180912
  Transmission Date: 20181010
  Serious: Yes (Hospitalization)
  Sender: FDA-Public Use
  Company Number: CA-UCBSA-8013099

PATIENT
  Age: 43 Year
  Sex: Female

DRUGS (7)
  1. OXCARBAZEPINE. [Concomitant]
     Active Substance: OXCARBAZEPINE
     Dosage: UPTITRATED
  2. LEVETIRACETAM. [Suspect]
     Active Substance: LEVETIRACETAM
     Indication: SEIZURE
     Dosage: UNK
     Route: 048
     Dates: start: 200307, end: 200307
  3. GABAPENTIN. [Concomitant]
     Active Substance: GABAPENTIN
     Indication: EPILEPSY
     Dosage: UNK
     Dates: end: 200402
  4. CLOBAZAM [Concomitant]
     Active Substance: CLOBAZAM
     Indication: EPILEPSY
     Dosage: UNK
     Dates: start: 200401
  5. LEVETIRACETAM. [Suspect]
     Active Substance: LEVETIRACETAM
     Dosage: 1000 MG DAILY
     Route: 048
     Dates: start: 200401
  6. TOPIRAMATE. [Concomitant]
     Active Substance: TOPIRAMATE
     Indication: EPILEPSY
     Dosage: UNK
  7. OXCARBAZEPINE. [Concomitant]
     Active Substance: OXCARBAZEPINE
     Indication: EPILEPSY
     Dosage: UNK

REACTIONS (9)
  - Catatonia [Recovered/Resolved]
  - Hallucination, auditory [Recovered/Resolved]
  - Social fear [Recovering/Resolving]
  - Urinary incontinence [Unknown]
  - Psychotic disorder [Recovering/Resolving]
  - Hallucination, visual [Recovered/Resolved]
  - Agitation [Recovering/Resolving]
  - Decreased appetite [Unknown]
  - Confusional state [Recovered/Resolved]

NARRATIVE: CASE EVENT DATE: 200307
